FAERS Safety Report 24630691 (Version 1)
Quarter: 2024Q4

REPORT INFORMATION
  Report Type: Spontaneous
  Country: DE (occurrence: DE)
  Receive Date: 20241118
  Receipt Date: 20241118
  Transmission Date: 20250115
  Serious: Yes (Death, Other)
  Sender: AMGEN
  Company Number: DE-AMGEN-DEUSP2024224097

PATIENT

DRUGS (1)
  1. BEVACIZUMAB [Suspect]
     Active Substance: BEVACIZUMAB
     Indication: Glioma
     Dosage: UNK
     Route: 065

REACTIONS (8)
  - Death [Fatal]
  - Disability [Unknown]
  - Glioma [Unknown]
  - Amaurosis [Unknown]
  - Visual impairment [Unknown]
  - Hormone level abnormal [Unknown]
  - Overweight [Unknown]
  - Off label use [Unknown]
